FAERS Safety Report 8987772 (Version 1)
Quarter: 2012Q4

REPORT INFORMATION
  Report Type: 
  Country: GB (occurrence: GB)
  Receive Date: 20121227
  Receipt Date: 20121227
  Transmission Date: 20130627
  Serious: Yes (Disabling)
  Sender: FDA-Public Use
  Company Number: GB-009507513-1212GBR008873

PATIENT
  Age: 25 Year
  Sex: Male
  Weight: 63 kg

DRUGS (4)
  1. CLARITYN ALLERGY [Suspect]
     Indication: SEASONAL ALLERGY
     Dosage: 10 mg, qd
     Route: 048
     Dates: start: 20120526, end: 20120526
  2. BECLOMETHASONE DIPROPIONATE [Concomitant]
  3. OTRIVINE [Concomitant]
  4. ACETAMINOPHEN [Concomitant]

REACTIONS (4)
  - Mood altered [Recovered/Resolved with Sequelae]
  - Insomnia [Recovered/Resolved with Sequelae]
  - Somnolence [Recovered/Resolved with Sequelae]
  - Headache [Recovered/Resolved with Sequelae]
